FAERS Safety Report 4862124-4 (Version None)
Quarter: 2005Q4

REPORT INFORMATION
  Report Type: 
  Country: None (occurrence: None)
  Receive Date: 20051221
  Receipt Date: 20051209
  Transmission Date: 20060501
  Serious: Yes (Other)
  Sender: FDA-Public Use
  Company Number: CA-BRISTOL-MYERS SQUIBB COMPANY-13218672

PATIENT

DRUGS (10)
  1. TEQUIN [Suspect]
     Route: 048
  2. GLYBURIDE [Concomitant]
     Route: 048
  3. HEPARIN [Concomitant]
     Route: 058
  4. LASIX [Concomitant]
     Route: 042
  5. CARBIDOPA AND LEVODOPA [Concomitant]
     Route: 048
  6. METFORMIN HCL [Concomitant]
     Route: 048
  7. NITRO-DUR [Concomitant]
  8. OXYBUTYNIN [Concomitant]
     Route: 048
  9. RAMIPRIL [Concomitant]
     Route: 048
  10. SIMVASTATIN [Concomitant]
     Route: 048

REACTIONS (2)
  - CONVULSION [None]
  - HYPOGLYCAEMIA [None]
